FAERS Safety Report 6203920-0 (Version None)
Quarter: 2009Q2

REPORT INFORMATION
  Report Type: 
  Country: None (occurrence: None)
  Receive Date: 20090527
  Receipt Date: 20090519
  Transmission Date: 20091009
  Serious: Yes (Hospitalization)
  Sender: FDA-Public Use
  Company Number: A0785054A

PATIENT
  Age: 56 Year
  Sex: Female

DRUGS (3)
  1. ADVAIR HFA [Suspect]
     Indication: CHRONIC OBSTRUCTIVE PULMONARY DISEASE
     Dosage: 1PUFF TWICE PER DAY
     Route: 055
     Dates: start: 20030101
  2. CEFTIN [Suspect]
     Indication: DRUG USE FOR UNKNOWN INDICATION
     Dosage: 1TAB SINGLE DOSE
     Route: 048
     Dates: start: 20020101, end: 20020101
  3. ABREVA [Concomitant]

REACTIONS (4)
  - ANAPHYLACTIC REACTION [None]
  - CANDIDIASIS [None]
  - DRUG HYPERSENSITIVITY [None]
  - ORAL HERPES [None]
